FAERS Safety Report 6933674-1 (Version None)
Quarter: 2010Q3

REPORT INFORMATION
  Report Type: 
  Country: None (occurrence: None)
  Receive Date: 20100820
  Receipt Date: 20100818
  Transmission Date: 20110219
  Serious: Yes (Hospitalization)
  Sender: FDA-Public Use
  Company Number: FR-SANOFI-AVENTIS-2010SA048932

PATIENT
  Age: 87 Year
  Sex: Female

DRUGS (12)
  1. LASIX [Suspect]
     Indication: HYPERTENSION
     Route: 048
     Dates: start: 20100622, end: 20100624
  2. RISPERDAL [Concomitant]
     Indication: PSYCHOTIC DISORDER
     Route: 048
     Dates: start: 20100401, end: 20100623
  3. TRANXENE [Concomitant]
     Indication: PSYCHOTIC DISORDER
     Route: 048
     Dates: start: 20100101, end: 20100623
  4. SEROPLEX [Concomitant]
     Route: 048
     Dates: start: 20100101, end: 20100623
  5. MODOPAR [Concomitant]
     Route: 048
     Dates: start: 20100101, end: 20100709
  6. KESTIN [Concomitant]
     Route: 048
     Dates: start: 20100101, end: 20100706
  7. FONZYLANE [Concomitant]
     Route: 048
     Dates: start: 20100101, end: 20100624
  8. CIFLOX [Concomitant]
     Indication: CYSTITIS
     Route: 048
     Dates: start: 20100501, end: 20100624
  9. ENALAPRIL MALEATE [Concomitant]
     Indication: PRODUCT USED FOR UNKNOWN INDICATION
     Route: 048
     Dates: start: 20100501, end: 20100706
  10. PLAVIX [Concomitant]
     Indication: PRODUCT USED FOR UNKNOWN INDICATION
     Route: 048
  11. LOVENOX [Concomitant]
     Route: 058
     Dates: start: 20100622, end: 20100626
  12. HUMALOG [Concomitant]
     Route: 058
     Dates: start: 20100622, end: 20100626

REACTIONS (3)
  - DEHYDRATION [None]
  - HYPOKALAEMIA [None]
  - RENAL FAILURE [None]
